FAERS Safety Report 23898845 (Version 1)
Quarter: 2024Q2

REPORT INFORMATION
  Report Type: Spontaneous
  Country: US (occurrence: US)
  Receive Date: 20240525
  Receipt Date: 20240525
  Transmission Date: 20240716
  Serious: No
  Sender: FDA-Public Use
  Company Number: US-ABBVIE-5774053

PATIENT
  Sex: Female

DRUGS (2)
  1. BOTOX [Suspect]
     Active Substance: ONABOTULINUMTOXINA
     Indication: Migraine
     Dosage: TIME INTERVAL: AS NECESSARY
     Route: 065
  2. UBRELVY [Suspect]
     Active Substance: UBROGEPANT
     Indication: Migraine
     Dosage: TIME INTERVAL: 0.33333333 WEEKS: FORM STRENGTH: 100 MILLIGRAM
     Route: 048

REACTIONS (4)
  - Fibromyalgia [Unknown]
  - Off label use [Unknown]
  - Migraine [Unknown]
  - Fatigue [Unknown]
